FAERS Safety Report 5884380-6 (Version None)
Quarter: 2008Q3

REPORT INFORMATION
  Report Type: 
  Country: None (occurrence: None)
  Receive Date: 20080915
  Receipt Date: 20080904
  Transmission Date: 20090109
  Serious: Yes (Disabling, Other)
  Sender: FDA-Public Use
  Company Number: JP-PFIZER INC-2008067528

PATIENT
  Sex: Female
  Weight: 51 kg

DRUGS (11)
  1. CAMPTOSAR [Suspect]
     Indication: RECTAL CANCER
     Route: 042
     Dates: start: 20080804, end: 20080804
  2. FLUOROURACIL [Suspect]
     Indication: RECTAL CANCER
     Route: 042
     Dates: start: 20080804, end: 20080804
  3. FLUOROURACIL [Suspect]
     Route: 042
     Dates: start: 20080804, end: 20080804
  4. CALCIUM FOLINATE [Concomitant]
     Indication: RECTAL CANCER
     Route: 042
     Dates: start: 20080804, end: 20080804
  5. NAUZELIN [Concomitant]
     Route: 042
     Dates: start: 20080805, end: 20080806
  6. KYTRIL [Concomitant]
     Route: 042
     Dates: start: 20080805, end: 20080806
  7. DECADRON SRC [Concomitant]
     Route: 042
     Dates: start: 20080805, end: 20080806
  8. PRIMPERAN INJ [Concomitant]
     Route: 042
     Dates: start: 20080805, end: 20080806
  9. ATARAX [Concomitant]
     Route: 042
     Dates: start: 20080805, end: 20080805
  10. AMINOLEBAN [Concomitant]
     Route: 042
     Dates: start: 20080806, end: 20080806
  11. MONILAC [Concomitant]
     Route: 048
     Dates: start: 20080806, end: 20080806

REACTIONS (3)
  - DEPRESSED LEVEL OF CONSCIOUSNESS [None]
  - RENAL IMPAIRMENT [None]
  - URINE OUTPUT DECREASED [None]
